FAERS Safety Report 19413389 (Version 1)
Quarter: 2021Q2

REPORT INFORMATION
  Report Type: Spontaneous
  Country: PL (occurrence: PL)
  Receive Date: 20210615
  Receipt Date: 20210615
  Transmission Date: 20210717
  Serious: Yes (Hospitalization, Other)
  Sender: FDA-Public Use
  Company Number: PL-AUROBINDO-AUR-APL-2021-024314

PATIENT
  Age: 68 Year
  Sex: Male

DRUGS (2)
  1. DOXAZOSIN [Concomitant]
     Active Substance: DOXAZOSIN MESYLATE
     Indication: BLOOD PRESSURE ABNORMAL
     Dosage: 16 MILLIGRAM, ONCE A DAY
     Route: 065
  2. CARVEDILOL. [Suspect]
     Active Substance: CARVEDILOL
     Indication: PAROXYSMAL ARRHYTHMIA
     Dosage: UNK
     Route: 065

REACTIONS (4)
  - Prostatomegaly [Unknown]
  - Phaeochromocytoma [Unknown]
  - Renal cyst [Unknown]
  - Gallbladder disorder [Unknown]
